FAERS Safety Report 4712679-5 (Version None)
Quarter: 2005Q3

REPORT INFORMATION
  Report Type: 
  Country: None (occurrence: None)
  Receive Date: 20050708
  Receipt Date: 20050107
  Transmission Date: 20060218
  Serious: Yes (Hospitalization)
  Sender: FDA-Public Use
  Company Number: US-2004-036993

PATIENT
  Age: 80 Year
  Sex: Male

DRUGS (1)
  1. ULTRAVIST 300 [Suspect]
     Indication: COMPUTERISED TOMOGRAM ABDOMEN
     Dosage: 150 ML, 1 DOSE AT 2.4 ML/SEC, INTRAVENOUS
     Route: 042
     Dates: start: 20041215, end: 20041215

REACTIONS (6)
  - ANAPHYLACTOID REACTION [None]
  - HYPOTENSION [None]
  - LOSS OF CONSCIOUSNESS [None]
  - OROPHARYNGEAL SWELLING [None]
  - RASH ERYTHEMATOUS [None]
  - SWELLING FACE [None]
